FAERS Safety Report 13953244 (Version 1)
Quarter: 2017Q3

REPORT INFORMATION
  Report Type: Spontaneous
  Country: US (occurrence: None)
  Receive Date: 20170908
  Receipt Date: 20170908
  Transmission Date: 20171128
  Serious: Yes (Hospitalization)
  Sender: FDA-Public Use
  Company Number: None

PATIENT
  Age: 64 Year
  Sex: Male

DRUGS (22)
  1. TRAZODONE [Concomitant]
     Active Substance: TRAZODONE HYDROCHLORIDE
  2. CARVEDILOL. [Concomitant]
     Active Substance: CARVEDILOL
  3. WARFARIN [Concomitant]
     Active Substance: WARFARIN
  4. OXYCOD [Concomitant]
  5. ACETAMIN [Concomitant]
     Active Substance: ACETAMINOPHEN
  6. LOPERAMIDE [Concomitant]
     Active Substance: LOPERAMIDE
  7. POTASSIUM [Concomitant]
     Active Substance: POTASSIUM
  8. DAILY VITE [Concomitant]
     Active Substance: VITAMINS
  9. ASPIRIN. [Concomitant]
     Active Substance: ASPIRIN
  10. TAMSULOSIN [Concomitant]
     Active Substance: TAMSULOSIN
  11. OMEPRAZOLE. [Concomitant]
     Active Substance: OMEPRAZOLE
  12. AMODARONE [Concomitant]
  13. HUMALOG [Concomitant]
     Active Substance: INSULIN LISPRO
  14. FERROUS [Concomitant]
     Active Substance: IRON
  15. PROCHLOPER [Concomitant]
  16. ATORVASTATIN [Concomitant]
     Active Substance: ATORVASTATIN
  17. EPOGEN [Concomitant]
     Active Substance: ERYTHROPOIETIN
  18. ISOSORB [Concomitant]
  19. LANTANOPROST [Concomitant]
     Active Substance: LATANOPROST
  20. ALLOPURINOL. [Concomitant]
     Active Substance: ALLOPURINOL
  21. SENSIPAR [Suspect]
     Active Substance: CINACALCET HYDROCHLORIDE
     Indication: HYPERPARATHYROIDISM PRIMARY
     Route: 048
     Dates: start: 20151217
  22. MELATONIN [Concomitant]
     Active Substance: MELATONIN

REACTIONS (1)
  - Gastrointestinal haemorrhage [None]

NARRATIVE: CASE EVENT DATE: 201708
